FAERS Safety Report 9714388 (Version 3)
Quarter: 2014Q1

REPORT INFORMATION
  Report Type: Spontaneous
  Country: DK (occurrence: DE)
  Receive Date: 20131126
  Receipt Date: 20140224
  Transmission Date: 20141002
  Serious: Yes (Hospitalization)
  Sender: FDA-Public Use
  Company Number: DE-FRI-1000051766

PATIENT
  Age: 50 Year
  Sex: Male
  Weight: 60 kg

DRUGS (12)
  1. CITALOPRAM [Suspect]
     Dosage: 20 MG
     Route: 048
     Dates: start: 20130720
  2. RISPERDAL [Suspect]
     Dosage: 6 MG
     Route: 048
     Dates: start: 20130806
  3. RISPERDAL [Suspect]
     Dosage: 2 MG
     Route: 048
  4. OXAZEPAM [Concomitant]
     Dosage: 20 MG
     Route: 048
     Dates: start: 20130719
  5. PANTOZOL [Concomitant]
     Dosage: 20 MG
     Route: 048
     Dates: start: 20130719
  6. QUENSYL [Concomitant]
     Indication: RHEUMATOID ARTHRITIS
     Dosage: 400 MG
     Route: 048
     Dates: start: 20130719
  7. QUENSYL [Concomitant]
     Dosage: 100 MG
     Route: 048
     Dates: start: 20130719
  8. METOPROLOL [Concomitant]
     Dosage: 95 MG
     Route: 048
     Dates: start: 20130719
  9. PREDNISOLON [Concomitant]
     Indication: RHEUMATOID ARTHRITIS
     Dosage: 2.5 MG
     Route: 048
     Dates: start: 20130720
  10. SPIRIVA [Concomitant]
     Dosage: 1 PUFF
     Route: 055
     Dates: start: 20130719
  11. METHOTREXAT [Concomitant]
     Indication: RHEUMATOID ARTHRITIS
     Dosage: ADMINISTRATION EVERY MONDAY
     Route: 048
     Dates: start: 20130722
  12. HALDOL [Concomitant]
     Dosage: 0.1071 ML
     Dates: start: 20130827

REACTIONS (7)
  - Hyponatraemia [Recovering/Resolving]
  - Inappropriate antidiuretic hormone secretion [Recovering/Resolving]
  - Disorientation [Recovered/Resolved]
  - Pyrexia [Recovered/Resolved]
  - Leukocytosis [Recovered/Resolved]
  - C-reactive protein increased [Recovering/Resolving]
  - Blood creatine phosphokinase increased [Unknown]
